FAERS Safety Report 6879893-4 (Version None)
Quarter: 2010Q3

REPORT INFORMATION
  Report Type: 
  Country: None (occurrence: None)
  Receive Date: 20100728
  Receipt Date: 20100719
  Transmission Date: 20110219
  Serious: Yes (Hospitalization)
  Sender: FDA-Public Use
  Company Number: FR-ASTRAZENECA-2010SE33792

PATIENT
  Age: 13572 Day
  Sex: Female

DRUGS (8)
  1. AVLOCARDYL [Suspect]
     Indication: MIGRAINE
     Route: 048
     Dates: start: 20100307, end: 20100307
  2. ZOMIG ORO [Suspect]
     Indication: MIGRAINE
     Route: 048
     Dates: start: 20100223, end: 20100306
  3. RELPAX [Suspect]
     Indication: MIGRAINE
     Route: 048
     Dates: start: 20100307, end: 20100307
  4. PARACETAMOL [Concomitant]
     Indication: MIGRAINE
  5. INDORAMIN [Concomitant]
     Route: 048
     Dates: start: 20100223
  6. TRIELLA [Concomitant]
  7. ZOLPIDEM [Concomitant]
  8. LYSANXIA [Concomitant]
     Dosage: AS REQUIRED

REACTIONS (2)
  - ANGINA PECTORIS [None]
  - PRINZMETAL ANGINA [None]
